FAERS Safety Report 4915151-2 (Version None)
Quarter: 2006Q1

REPORT INFORMATION
  Report Type: 
  Country: None (occurrence: None)
  Receive Date: 20060216
  Receipt Date: 20060216
  Transmission Date: 20060701
  Serious: Yes (Hospitalization)
  Sender: FDA-Public Use
  Company Number: None

PATIENT
  Sex: Female

DRUGS (13)
  1. DILANTIN [Suspect]
     Indication: CONVULSION
     Dosage: 200MG PO IN AM ; 300MG PO PM STARTED ~ 10 DAYS PRIOR TO ADMISSION
     Route: 048
  2. MYSOLINE [Concomitant]
  3. KEPPRA [Concomitant]
  4. SLO-MAG [Concomitant]
  5. RISPERDAL [Concomitant]
  6. SYNTHROID [Concomitant]
  7. OS-CAL-D [Concomitant]
  8. M.V.I. [Concomitant]
  9. FESO4 [Concomitant]
  10. PREVACID [Concomitant]
  11. ATIVAN [Concomitant]
  12. VALIUM [Concomitant]
  13. ZYPREXA [Concomitant]

REACTIONS (4)
  - COORDINATION ABNORMAL [None]
  - DRUG TOXICITY [None]
  - LETHARGY [None]
  - SOMNOLENCE [None]
